FAERS Safety Report 13844078 (Version 3)
Quarter: 2017Q4

REPORT INFORMATION
  Report Type: Report from Study
  Country: None (occurrence: US)
  Receive Date: 20170808
  Receipt Date: 20171106
  Transmission Date: 20180320
  Serious: Yes (Other)
  Sender: FDA-Public Use
  Company Number: US-VIFOR (INTERNATIONAL) INC.-VIT-2017-08302

PATIENT
  Age: 42 Year
  Sex: Female
  Weight: 120.31 kg

DRUGS (6)
  1. GLIPIZIDE. [Concomitant]
     Active Substance: GLIPIZIDE
  2. VELTASSA [Suspect]
     Active Substance: PATIROMER
     Dates: start: 2017
  3. CARVEDILOL. [Concomitant]
     Active Substance: CARVEDILOL
  4. HYDRALAZINE [Concomitant]
     Active Substance: HYDRALAZINE HYDROCHLORIDE
  5. VELTASSA [Suspect]
     Active Substance: PATIROMER
     Indication: BLOOD POTASSIUM INCREASED
     Route: 048
     Dates: start: 20170311
  6. VELTASSA [Suspect]
     Active Substance: PATIROMER
     Dates: start: 2017

REACTIONS (1)
  - Dialysis [Recovering/Resolving]

NARRATIVE: CASE EVENT DATE: 201709
